FAERS Safety Report 9494393 (Version 2)
Quarter: 2013Q3

REPORT INFORMATION
  Report Type: Spontaneous
  Country: FR (occurrence: FR)
  Receive Date: 20130903
  Receipt Date: 20130903
  Transmission Date: 20140515
  Serious: Yes (Hospitalization, Other)
  Sender: FDA-Public Use
  Company Number: FR-SANOFI-AVENTIS-200911441FR

PATIENT
  Age: 54 Year
  Sex: Female

DRUGS (19)
  1. TRIATEC [Suspect]
     Indication: PRODUCT USED FOR UNKNOWN INDICATION
     Route: 048
  2. LASILIX [Suspect]
     Indication: PRODUCT USED FOR UNKNOWN INDICATION
     Route: 048
  3. MEDIATOR [Suspect]
     Indication: WEIGHT CONTROL
     Dosage: DOSE AS USED: 300 TO 450  MG?DOSE UNIT: 150 MG
     Route: 048
     Dates: start: 200612, end: 200812
  4. CARDENSIEL [Suspect]
     Indication: PRODUCT USED FOR UNKNOWN INDICATION
     Route: 048
     Dates: start: 201012
  5. EFFEXOR [Suspect]
     Indication: DEPRESSIVE SYMPTOM
     Route: 048
     Dates: start: 2001
  6. EFFEXOR [Suspect]
     Indication: DEPRESSIVE SYMPTOM
     Route: 048
     Dates: start: 2008
  7. HEMIGOXINE NATIVELLE [Suspect]
     Indication: PRODUCT USED FOR UNKNOWN INDICATION
     Route: 048
  8. ATARAX [Suspect]
     Indication: PRODUCT USED FOR UNKNOWN INDICATION
     Route: 048
  9. MONTELUKAST SODIUM [Concomitant]
  10. TRANXENE [Concomitant]
  11. LAROXYL [Concomitant]
     Indication: DEPRESSION
     Dates: start: 2006
  12. OGAST [Concomitant]
  13. DETENSIEL [Concomitant]
  14. KENZEN [Concomitant]
  15. KARDEGIC [Concomitant]
     Route: 048
  16. ELISOR [Concomitant]
  17. ZYBAN [Concomitant]
     Route: 048
     Dates: start: 200612, end: 200903
  18. TETRAZEPAM [Concomitant]
     Dates: start: 200612, end: 200903
  19. PAROXETINE HYDROCHLORIDE [Concomitant]
     Dates: start: 200612, end: 200903

REACTIONS (2)
  - Mitral valve incompetence [Recovered/Resolved with Sequelae]
  - Aortic valve incompetence [Recovered/Resolved with Sequelae]
